FAERS Safety Report 21171443 (Version 1)
Quarter: 2022Q3

REPORT INFORMATION
  Report Type: Spontaneous
  Country: FR (occurrence: FR)
  Receive Date: 20220804
  Receipt Date: 20220804
  Transmission Date: 20221026
  Serious: Yes (Other)
  Sender: FDA-Public Use
  Company Number: None

PATIENT
  Age: 28 Year
  Sex: Male

DRUGS (1)
  1. TRAMADOL [Suspect]
     Active Substance: TRAMADOL
     Indication: Back pain
     Dosage: 400 TO 600 MG/DAY, FREQUENCY TIME : 1 DAYS, FREQUENCY TIME : 1 MONTHS
     Route: 065
     Dates: start: 202204, end: 20220525

REACTIONS (2)
  - Withdrawal syndrome [Recovered/Resolved]
  - Intentional product misuse [Recovering/Resolving]

NARRATIVE: CASE EVENT DATE: 20220401
